FAERS Safety Report 24001518 (Version 2)
Quarter: 2024Q3

REPORT INFORMATION
  Report Type: Report from Study
  Country: CA (occurrence: CA)
  Receive Date: 20240621
  Receipt Date: 20240919
  Transmission Date: 20241016
  Serious: Yes (Disabling)
  Sender: VERITY PHARMACEUTICALS
  Company Number: CA-VER-202400340

PATIENT
  Age: 68 Year
  Sex: Male

DRUGS (3)
  1. TRELSTAR [Suspect]
     Active Substance: TRIPTORELIN PAMOATE
     Indication: Prostate cancer
     Dosage: 22.5 MILLIGRAM(S), 1 IN 6 MONTH, POWDER FOR PROLONGED-RELEASE SUSPENSION FOR INJECT
     Route: 030
     Dates: start: 20221207, end: 20221207
  2. TRELSTAR [Suspect]
     Active Substance: TRIPTORELIN PAMOATE
     Indication: Prostate cancer
     Dosage: 22.5 MILLIGRAM(S), 1 IN 6 MONTH, POWDER FOR PROLONGED-RELEASE SUSPENSION FOR INJECT
     Route: 030
     Dates: start: 20230607, end: 20230607
  3. TRELSTAR [Suspect]
     Active Substance: TRIPTORELIN PAMOATE
     Indication: Prostate cancer
     Dosage: START DATE: 06-DEC-2023??22.5 MILLIGRAM(S), 1 IN 6 MONTH, POWDER FOR PROLONGED-RELEASE SUSPENSION FO
     Route: 030
     Dates: end: 20231206

REACTIONS (8)
  - Pain [Not Recovered/Not Resolved]
  - Liquid product physical issue [Unknown]
  - Walking disability [Not Recovered/Not Resolved]
  - Muscular weakness [Not Recovered/Not Resolved]
  - Hypersomnia [Not Recovered/Not Resolved]
  - Product dose omission issue [Unknown]
  - Weight decreased [Not Recovered/Not Resolved]
  - General physical health deterioration [Not Recovered/Not Resolved]

NARRATIVE: CASE EVENT DATE: 20231201
